FAERS Safety Report 8232831-4 (Version None)
Quarter: 2012Q1

REPORT INFORMATION
  Report Type: 
  Country: None (occurrence: None)
  Receive Date: 20120323
  Receipt Date: 20110404
  Transmission Date: 20120608
  Serious: Yes (Hospitalization)
  Sender: FDA-Public Use
  Company Number: PHEH2011US013044

PATIENT
  Sex: Male

DRUGS (11)
  1. METOPROLOL TARTRATE [Concomitant]
  2. LIPITOR [Concomitant]
     Dosage: 20 MG
  3. OMEPRAZOLE [Concomitant]
     Dosage: 20 MG
  4. NOVOLOG [Concomitant]
  5. PREDNISONE TAB [Concomitant]
     Dosage: 5 MG
  6. PROGRAF [Concomitant]
     Dosage: 1 MG
  7. AMLODIPINE [Concomitant]
     Dosage: 5 MG
  8. LISINOPRIL [Concomitant]
     Dosage: 20 MG
  9. LEVOTHYROXINE SODIUM [Concomitant]
     Dosage: 25 UG
  10. MYFORTIC [Suspect]
     Indication: IMMUNOSUPPRESSION
     Dosage: 360 MG, BID
     Route: 048
     Dates: start: 20050919
  11. LANTUS [Concomitant]

REACTIONS (1)
  - DIABETIC COMPLICATION [None]
